FAERS Safety Report 25245982 (Version 1)
Quarter: 2025Q2

REPORT INFORMATION
  Report Type: Spontaneous
  Country: US (occurrence: None)
  Receive Date: 20250428
  Receipt Date: 20250428
  Transmission Date: 20250716
  Serious: Yes (Hospitalization)
  Sender: FDA-CTU
  Company Number: None

PATIENT
  Age: 63 Year
  Sex: Female
  Weight: 87.75 kg

DRUGS (4)
  1. GAMMAKED [Suspect]
     Active Substance: HUMAN IMMUNOGLOBULIN G
     Indication: Polyneuropathy
     Route: 041
     Dates: start: 20231002
  2. ACETAMINOPHEN 325MG [Concomitant]
  3. DIPHEHYDRAMINE 25MG [Concomitant]
  4. SODIUM CHLORIDE 500ML [Concomitant]

REACTIONS (5)
  - Back pain [None]
  - Nausea [None]
  - Infusion related reaction [None]
  - Blood pressure increased [None]
  - Heart rate decreased [None]

NARRATIVE: CASE EVENT DATE: 20250427
